FAERS Safety Report 4710572-5 (Version None)
Quarter: 2005Q3

REPORT INFORMATION
  Report Type: 
  Country: None (occurrence: None)
  Receive Date: 20050706
  Receipt Date: 20050706
  Transmission Date: 20060218
  Serious: Yes (Hospitalization)
  Sender: FDA-Public Use
  Company Number: None

PATIENT
  Age: 50 Year
  Sex: Female

DRUGS (11)
  1. PROCRIT [Suspect]
     Indication: ANAEMIA
     Dosage: 90,000 IU SQ WEEKLY
     Route: 058
     Dates: start: 20050325, end: 20050506
  2. GEMZAR [Suspect]
     Indication: PANCREATIC CARCINOMA
     Dosage: 1430 MG
     Dates: start: 20050325, end: 20050506
  3. ERBITUX IMCLONE OR BRISTOL MYERS [Suspect]
     Indication: PANCREATIC CARCINOMA
     Dosage: 358 MG
     Route: 062
     Dates: start: 20050325, end: 20050506
  4. LASIX [Concomitant]
  5. SOLU-CORTE [Concomitant]
  6. PHENERGAN [Concomitant]
  7. PALLADONE [Concomitant]
  8. HYDROMORPHONE HCL [Concomitant]
  9. AMBIEN [Concomitant]
  10. TPN [Concomitant]
  11. POTASSIUM CHLORIDE [Concomitant]

REACTIONS (6)
  - ARRHYTHMIA [None]
  - CARDIO-RESPIRATORY ARREST [None]
  - HAEMATOTOXICITY [None]
  - MALIGNANT NEOPLASM PROGRESSION [None]
  - PAIN [None]
  - SEPSIS [None]
